FAERS Safety Report 9177347 (Version 4)
Quarter: 2014Q1

REPORT INFORMATION
  Report Type: Spontaneous
  Country: US (occurrence: US)
  Receive Date: 20130321
  Receipt Date: 20140331
  Transmission Date: 20141002
  Serious: Yes (Hospitalization, Other)
  Sender: FDA-Public Use
  Company Number: US-009507513-1303USA009721

PATIENT
  Sex: Female
  Weight: 65.31 kg

DRUGS (6)
  1. FOSAMAX [Suspect]
     Indication: OSTEOPOROSIS
     Dosage: 10 MG, QD
     Route: 048
     Dates: start: 199510, end: 200110
  2. FOSAMAX [Suspect]
     Dosage: 70 MG, QW
     Route: 048
     Dates: start: 200110, end: 200803
  3. ALENDRONATE SODIUM [Suspect]
     Indication: OSTEOPOROSIS
     Dosage: 70 MG, QW
     Route: 048
     Dates: start: 200804, end: 201011
  4. CALCIUM (UNSPECIFIED) [Concomitant]
     Dosage: 600 MG, BID
     Dates: start: 1995
  5. OMEPRAZOLE [Concomitant]
     Dosage: UNK
     Dates: start: 2002, end: 2012
  6. METOPROLOL [Suspect]

REACTIONS (46)
  - Intramedullary rod insertion [Recovered/Resolved]
  - Femur fracture [Recovered/Resolved]
  - Intramedullary rod insertion [Not Recovered/Not Resolved]
  - Femur fracture [Not Recovered/Not Resolved]
  - Coronary arterial stent insertion [Unknown]
  - Coronary artery disease [Unknown]
  - Chest pain [Unknown]
  - Coronary artery stenosis [Unknown]
  - Coronary artery stenosis [Unknown]
  - Ventricular hypokinesia [Unknown]
  - Mitral valve incompetence [Unknown]
  - Tricuspid valve incompetence [Unknown]
  - Pulmonary hypertension [Unknown]
  - Aortic valve incompetence [Unknown]
  - Hyponatraemia [Unknown]
  - Hypovolaemia [Unknown]
  - Gastroenteritis [Unknown]
  - Bradycardia [Unknown]
  - Urinary tract infection [Unknown]
  - Adverse event [Unknown]
  - Pain [Unknown]
  - Renal artery stenosis [Unknown]
  - Heart rate increased [Unknown]
  - Hypertension [Unknown]
  - Hypothyroidism [Unknown]
  - Sacroiliitis [Unknown]
  - Osteoarthritis [Unknown]
  - Hiatus hernia [Unknown]
  - Chest pain [Unknown]
  - Familial tremor [Unknown]
  - Anaemia [Unknown]
  - Upper respiratory tract infection [Recovered/Resolved]
  - Stress fracture [Not Recovered/Not Resolved]
  - Bone scan abnormal [Unknown]
  - Chronic obstructive pulmonary disease [Unknown]
  - Atrial fibrillation [Unknown]
  - Macular degeneration [Unknown]
  - Peptic ulcer [Unknown]
  - Urinary retention [Unknown]
  - Gastroenteritis [Unknown]
  - Abdominal pain lower [Unknown]
  - Oedema peripheral [Unknown]
  - Pain in extremity [Recovered/Resolved]
  - Pain in extremity [Not Recovered/Not Resolved]
  - Gastrooesophageal reflux disease [Unknown]
  - Vertigo [Unknown]
